FAERS Safety Report 23400334 (Version 2)
Quarter: 2024Q4

REPORT INFORMATION
  Report Type: Spontaneous
  Country: US (occurrence: US)
  Receive Date: 20240115
  Receipt Date: 20241002
  Transmission Date: 20250115
  Serious: No
  Sender: NOVARTIS
  Company Number: US-002147023-NVSC2024US007937

PATIENT
  Age: 79 Year
  Sex: Male

DRUGS (1)
  1. LEQVIO [Suspect]
     Active Substance: INCLISIRAN SODIUM
     Indication: Hyperlipidaemia
     Dosage: 284 MG
     Route: 058

REACTIONS (5)
  - Injection site swelling [Recovering/Resolving]
  - Injection site exfoliation [Recovered/Resolved]
  - Injection site erythema [Recovering/Resolving]
  - Injection site pruritus [Recovering/Resolving]
  - Injection site pain [Recovered/Resolved]

NARRATIVE: CASE EVENT DATE: 20231214
